FAERS Safety Report 9400143 (Version 1)
Quarter: 2013Q2

REPORT INFORMATION
  Report Type: Spontaneous
  Country: US (occurrence: None)
  Receive Date: 20130522
  Receipt Date: 20130522
  Transmission Date: 20140414
  Serious: Yes (Death, Life-Threatening, Hospitalization)
  Sender: FDA-Public Use
  Company Number: TPA2009A01640

PATIENT
  Sex: Female

DRUGS (1)
  1. PIOGLITAZONE HYDROCHLORIDE (PIOGLITAZONE HYDROCHLORIDE) [Suspect]
     Route: 048
     Dates: start: 20090525

REACTIONS (3)
  - Dyspnoea [None]
  - Apparent life threatening event [None]
  - Chest pain [None]
